FAERS Safety Report 24018552 (Version 1)
Quarter: 2024Q2

REPORT INFORMATION
  Report Type: Spontaneous
  Country: US (occurrence: None)
  Receive Date: 20240627
  Receipt Date: 20240627
  Transmission Date: 20240715
  Serious: No
  Sender: FDA-Public Use
  Company Number: 2024A130352

PATIENT
  Sex: Female

DRUGS (2)
  1. BREZTRI [Suspect]
     Active Substance: BUDESONIDE\FORMOTEROL\GLYCOPYRROLATE
     Indication: Product used for unknown indication
     Route: 055
  2. NINTEDANIB ESYLATE [Suspect]
     Active Substance: NINTEDANIB ESYLATE
     Indication: Interstitial lung disease
     Route: 048

REACTIONS (11)
  - Diarrhoea [Recovered/Resolved]
  - Dysphonia [Recovering/Resolving]
  - Secretion discharge [Recovering/Resolving]
  - Laryngitis [Unknown]
  - Cough [Unknown]
  - Abdominal discomfort [Unknown]
  - Pain [Recovered/Resolved]
  - Headache [Unknown]
  - Memory impairment [Unknown]
  - Sputum increased [Recovering/Resolving]
  - Product dose omission issue [Unknown]
